FAERS Safety Report 15244788 (Version 2)
Quarter: 2018Q3

REPORT INFORMATION
  Report Type: Report from Study
  Country: GB (occurrence: GB)
  Receive Date: 20180806
  Receipt Date: 20180810
  Transmission Date: 20181010
  Serious: Yes (Other)
  Sender: FDA-Public Use
  Company Number: PHHY2018GB066106

PATIENT
  Sex: Female

DRUGS (1)
  1. COSENTYX [Suspect]
     Active Substance: SECUKINUMAB
     Indication: PSORIATIC ARTHROPATHY
     Dosage: 300 MG,(2 PENS) (WEEKLY 0,1,2,3,4 AND THEN ONCE MONTHLY)
     Route: 058
     Dates: start: 20180312

REACTIONS (4)
  - Lower respiratory tract infection [Unknown]
  - Asthma [Unknown]
  - Malaise [Not Recovered/Not Resolved]
  - Sensitivity to weather change [Unknown]
